FAERS Safety Report 9146855 (Version 1)
Quarter: 2013Q1

REPORT INFORMATION
  Report Type: Spontaneous
  Country: US (occurrence: None)
  Receive Date: 20130228
  Receipt Date: 20130228
  Transmission Date: 20140127
  Serious: Yes (Other)
  Sender: FDA-Public Use
  Company Number: None

PATIENT
  Sex: Male
  Weight: 136.4 kg

DRUGS (1)
  1. METFORMIN [Suspect]
     Dosage: 750 MG ONCE DAY ORAL
     Route: 048
     Dates: start: 2007, end: 2012

REACTIONS (2)
  - Rash [None]
  - Urticaria [None]
